FAERS Safety Report 23937839 (Version 1)
Quarter: 2024Q2

REPORT INFORMATION
  Report Type: Spontaneous
  Country: US (occurrence: None)
  Receive Date: 20240604
  Receipt Date: 20240604
  Transmission Date: 20240716
  Serious: Yes (Other)
  Sender: FDA-Public Use
  Company Number: None

PATIENT
  Sex: Male

DRUGS (2)
  1. VIGABATRIN [Suspect]
     Active Substance: VIGABATRIN
     Indication: Encephalopathy neonatal
     Route: 048
     Dates: start: 20231116
  2. VIGABATRIN [Suspect]
     Active Substance: VIGABATRIN
     Indication: Periventricular leukomalacia

REACTIONS (1)
  - Blindness [None]
